FAERS Safety Report 8583720-7 (Version None)
Quarter: 2012Q3

REPORT INFORMATION
  Report Type: 
  Country: None (occurrence: None)
  Receive Date: 20120810
  Receipt Date: 20120719
  Transmission Date: 20120928
  Serious: Yes (Death)
  Sender: FDA-Public Use
  Company Number: JP-009507513-1207JPN005341

PATIENT

DRUGS (5)
  1. SPIRONOLACTONE [Concomitant]
  2. LASIX [Concomitant]
  3. WARFARIN SODIUM [Concomitant]
  4. SITAGLIPTIN PHOSPHATE [Suspect]
     Indication: TYPE 2 DIABETES MELLITUS
     Dosage: 50 MG, QD
     Route: 048
     Dates: start: 20120525, end: 20120629
  5. FAMOTIDINE [Concomitant]

REACTIONS (3)
  - PANCREATITIS ACUTE [None]
  - PNEUMOBILIA [None]
  - CHOLECYSTITIS ACUTE [None]
